FAERS Safety Report 4488134-7 (Version None)
Quarter: 2004Q4

REPORT INFORMATION
  Report Type: 
  Country: None (occurrence: None)
  Receive Date: 20041025
  Receipt Date: 20041007
  Transmission Date: 20050328
  Serious: Yes (Hospitalization)
  Sender: FDA-Public Use
  Company Number: 2004GB02440

PATIENT
  Age: 64 Year
  Sex: Female
  Weight: 65.5 kg

DRUGS (4)
  1. NOLVADEX [Suspect]
     Indication: BREAST CANCER
     Dosage: 20 MG QD PO
     Route: 048
     Dates: start: 19991012
  2. VOLTAREN [Concomitant]
  3. CO-CODAMOL [Concomitant]
  4. CIMETIDINE [Concomitant]

REACTIONS (1)
  - ARTHRALGIA [None]
